FAERS Safety Report 5415946-5 (Version None)
Quarter: 2007Q3

REPORT INFORMATION
  Report Type: 
  Country: None (occurrence: None)
  Receive Date: 20070815
  Receipt Date: 20070807
  Transmission Date: 20080115
  Serious: Yes (Hospitalization)
  Sender: FDA-Public Use
  Company Number: US-SHR-US-2007-027244

PATIENT
  Age: 62 Year
  Sex: Male

DRUGS (9)
  1. LEUKINE [Suspect]
     Indication: PROSTATE CANCER
     Dosage: 250 MCG/M2/D, DAYS 1-14Q21DAYS
     Route: 058
     Dates: start: 20070619, end: 20070702
  2. NORVASC [Concomitant]
  3. VITAMIN D [Concomitant]
  4. ASCORBIC ACID [Concomitant]
  5. VICODIN [Concomitant]
  6. CIPRO [Concomitant]
  7. VYTORIN [Concomitant]
  8. DOCETAXEL [Suspect]
     Indication: PROSTATE CANCER
     Dosage: 75MG/M2 DAY 2X6 CYCLES
     Route: 042
     Dates: start: 20070116, end: 20070515
  9. PREDNISONE TAB [Concomitant]
     Indication: PROSTATE CANCER
     Dosage: 5 MG2XD DAYS 1-21 EACH CYCLE
     Route: 048
     Dates: start: 20070115

REACTIONS (1)
  - PULMONARY EMBOLISM [None]
